FAERS Safety Report 8538706 (Version 15)
Quarter: 2014Q2

REPORT INFORMATION
  Report Type: Report from Study
  Country: CA (occurrence: CA)
  Receive Date: 20120501
  Receipt Date: 20140501
  Transmission Date: 20141212
  Serious: Yes (Other)
  Sender: FDA-Public Use
  Company Number: CA-ROCHE-1062134

PATIENT
  Age: 61 Year
  Sex: Female
  Weight: 68 kg

DRUGS (19)
  1. RITUXAN [Suspect]
     Indication: RHEUMATOID ARTHRITIS
     Dosage: LAST DOSE ON: 11/SEP/2012
     Route: 042
     Dates: start: 20101104
  2. RITUXAN [Suspect]
     Route: 065
     Dates: start: 20120911
  3. PROLIA [Suspect]
     Indication: OSTEOPOROSIS
     Route: 065
  4. ARAVA [Concomitant]
  5. PREDNISOLONE [Concomitant]
  6. SULFAZINE [Concomitant]
  7. PLAQUENIL [Concomitant]
  8. AVAPRO [Concomitant]
  9. METHOTREXATE [Concomitant]
  10. DIPHENHYDRAMINE HCL [Concomitant]
     Indication: PREMEDICATION
     Route: 048
     Dates: start: 20110816, end: 20110816
  11. DIPHENHYDRAMINE HCL [Concomitant]
     Route: 048
     Dates: start: 20101104
  12. ACETAMINOPHEN [Concomitant]
     Indication: PREMEDICATION
     Route: 048
     Dates: start: 20110816, end: 20110816
  13. ACETAMINOPHEN [Concomitant]
     Route: 048
     Dates: start: 20101104
  14. METHYLPREDNISOLONE [Concomitant]
     Indication: PREMEDICATION
     Route: 042
     Dates: start: 20110816, end: 20110816
  15. METHYLPREDNISOLONE [Concomitant]
     Route: 042
     Dates: start: 20101104
  16. FOLIC ACID [Concomitant]
  17. NEXIUM [Concomitant]
  18. LYRICA [Concomitant]
  19. ELAVIL (CANADA) [Concomitant]

REACTIONS (23)
  - Spinal fracture [Not Recovered/Not Resolved]
  - Eye disorder [Unknown]
  - Radial nerve compression [Recovering/Resolving]
  - Thyroid disorder [Unknown]
  - Lung disorder [Unknown]
  - Osteoporosis [Not Recovered/Not Resolved]
  - Peripheral paralysis [Unknown]
  - Cataract [Not Recovered/Not Resolved]
  - Arthralgia [Recovered/Resolved]
  - Muscle spasms [Recovered/Resolved]
  - Sciatica [Unknown]
  - Localised infection [Unknown]
  - Wound [Unknown]
  - Wound [Not Recovered/Not Resolved]
  - Wound infection [Recovered/Resolved]
  - Cyst [Not Recovered/Not Resolved]
  - Blood pressure increased [Unknown]
  - Oral herpes [Unknown]
  - Ingrown hair [Not Recovered/Not Resolved]
  - Dry mouth [Unknown]
  - Vision blurred [Unknown]
  - Pain in jaw [Unknown]
  - Gingival discolouration [Recovering/Resolving]
